FAERS Safety Report 7517455-6 (Version None)
Quarter: 2011Q2

REPORT INFORMATION
  Report Type: 
  Country: None (occurrence: None)
  Receive Date: 20110601
  Receipt Date: 20110527
  Transmission Date: 20111010
  Serious: Yes (Hospitalization)
  Sender: FDA-Public Use
  Company Number: IT-ABBOTT-11P-083-0729029-00

PATIENT
  Age: 3 Year
  Sex: Male

DRUGS (1)
  1. DEPAKENE [Suspect]
     Indication: PETIT MAL EPILEPSY
     Dosage: DAILY, GASTRO-RESISTANT TABLETS
     Route: 048
     Dates: start: 20110401, end: 20110430

REACTIONS (2)
  - ABDOMINAL PAIN [None]
  - CONVULSION [None]
